FAERS Safety Report 16534446 (Version 1)
Quarter: 2019Q3

REPORT INFORMATION
  Report Type: Spontaneous
  Country: NL (occurrence: NL)
  Receive Date: 20190705
  Receipt Date: 20190705
  Transmission Date: 20191004
  Serious: Yes (Other)
  Sender: FDA-Public Use
  Company Number: NL-SUN PHARMACEUTICAL INDUSTRIES LTD-2019RR-212747

PATIENT
  Sex: Male
  Weight: 99 kg

DRUGS (5)
  1. TAMSULOSIN [Suspect]
     Active Substance: TAMSULOSIN
     Indication: LOWER URINARY TRACT SYMPTOMS
     Dosage: 1D1T, MG DAILY
     Route: 050
     Dates: start: 20190514
  2. MORFINE DRANK  1MG/ML (HCL) [Concomitant]
     Indication: PRODUCT USED FOR UNKNOWN INDICATION
     Dosage: 1 DOSAGE FORM, UNK
     Route: 065
  3. TEMAZEPAM TABLET 10MG [Concomitant]
     Indication: PRODUCT USED FOR UNKNOWN INDICATION
     Dosage: 10MG, UNK
     Route: 065
  4. PANTOPRAZOL TABLET MSR 40MG [Concomitant]
     Active Substance: PANTOPRAZOLE SODIUM
     Indication: PRODUCT USED FOR UNKNOWN INDICATION
     Dosage: 1DD1, 40MG DAILY
     Route: 065
  5. SIMVASTATINE TABLET FO 40MG [Concomitant]
     Indication: PRODUCT USED FOR UNKNOWN INDICATION
     Dosage: 1DD1, 40MG, DAILY
     Route: 065

REACTIONS (1)
  - Urge incontinence [Not Recovered/Not Resolved]
